FAERS Safety Report 9780806 (Version 2)
Quarter: 2014Q1

REPORT INFORMATION
  Report Type: Report from Study
  Country: BR (occurrence: BR)
  Receive Date: 20131224
  Receipt Date: 20140205
  Transmission Date: 20141002
  Serious: Yes (Other)
  Sender: FDA-Public Use
  Company Number: PHHY2013BR150976

PATIENT
  Sex: Male
  Weight: 52 kg

DRUGS (2)
  1. RITALIN LA [Suspect]
     Indication: ATTENTION DEFICIT/HYPERACTIVITY DISORDER
     Dosage: 1 DF, DAILY
     Dates: end: 20131219
  2. TRILEPTAL [Concomitant]
     Dosage: UNK UKN, UNK

REACTIONS (3)
  - Dyslexia [Unknown]
  - Learning disorder [Unknown]
  - Drug ineffective [Unknown]
